FAERS Safety Report 9332006 (Version 1)
Quarter: 2013Q2

REPORT INFORMATION
  Report Type: Spontaneous
  Country: DE (occurrence: None)
  Receive Date: 20130603
  Receipt Date: 20130603
  Transmission Date: 20140414
  Serious: Yes (Congenital Anomaly, Other)
  Sender: FDA-Public Use
  Company Number: GER/GER/13/0029707

PATIENT
  Sex: Male
  Weight: 4.87 kg

DRUGS (7)
  1. LAMOTRIGINE (LAMOTRIGINE) [Suspect]
     Indication: PRODUCT USED FOR UNKNOWN INDICATION
     Route: 064
     Dates: start: 20110806, end: 20120511
  2. KEPPRA (LEVETIRACETAM) [Suspect]
     Indication: PRODUCT USED FOR UNKNOWN INDICATION
     Route: 064
     Dates: start: 20110806, end: 20120511
  3. SEROQUEL (QUETIAPINE FUMARATE) [Suspect]
     Indication: PRODUCT USED FOR UNKNOWN INDICATION
     Route: 064
     Dates: start: 20110806, end: 20120511
  4. RIVOTRIL (CLONAZEPAM) [Suspect]
     Indication: PRODUCT USED FOR UNKNOWN INDICATION
     Route: 064
     Dates: start: 20110806, end: 20120315
  5. HEROIN (DIAMORPHINE) [Concomitant]
  6. EUTHYROX (LEVOTHYROXINE SODIUM)(TABLET)(LEVOTHYROXINE SODIUM) [Concomitant]
  7. STANGYL (TRIMIPRAMINE MALEATE) [Concomitant]

REACTIONS (11)
  - Maternal drugs affecting foetus [None]
  - Neonatal respiratory distress syndrome [None]
  - Drug withdrawal syndrome neonatal [None]
  - Convulsion neonatal [None]
  - Dysmorphism [None]
  - Retrognathia [None]
  - Oxygen saturation decreased [None]
  - Agitation neonatal [None]
  - Hypertonia neonatal [None]
  - Dyskinesia [None]
  - Neurological symptom [None]
